FAERS Safety Report 16049236 (Version 2)
Quarter: 2019Q1

REPORT INFORMATION
  Report Type: Spontaneous
  Country: US (occurrence: US)
  Receive Date: 20190307
  Receipt Date: 20190313
  Transmission Date: 20190418
  Serious: Yes (Other)
  Sender: FDA-Public Use
  Company Number: US-GLAXOSMITHKLINE-US2019036886

PATIENT
  Sex: Male

DRUGS (1)
  1. LAMICTAL XR [Suspect]
     Active Substance: LAMOTRIGINE
     Indication: BIPOLAR DISORDER
     Dosage: UNK
     Route: 065

REACTIONS (6)
  - Headache [Unknown]
  - Noninfective encephalitis [Unknown]
  - Meningitis aseptic [Unknown]
  - Arachnoid cyst [Unknown]
  - Cerebral disorder [Unknown]
  - Adverse drug reaction [Unknown]
